FAERS Safety Report 8074057-3 (Version None)
Quarter: 2011Q4

REPORT INFORMATION
  Report Type: 
  Country: None (occurrence: None)
  Receive Date: 20111221
  Receipt Date: 20101224
  Transmission Date: 20120403
  Serious: Yes (Other)
  Sender: FDA-Public Use
  Company Number: PHHY2009US66850

PATIENT
  Age: 68 Year
  Sex: Female
  Weight: 180 kg

DRUGS (7)
  1. DYTIDE (BENZTHIAZIDE, TRIAMTERENE) [Concomitant]
  2. NEXIUM [Concomitant]
  3. VIDORA (INDORAMIN) [Concomitant]
  4. EXJADE [Suspect]
     Indication: IRON OVERLOAD
     Dosage: 1000 MG, QD, ORAL, 1000 MG, ORAL
     Route: 048
     Dates: start: 20090618, end: 20101029
  5. EXJADE [Suspect]
     Indication: IRON OVERLOAD
     Dosage: 1000 MG, QD, ORAL, 1000 MG, ORAL
     Route: 048
     Dates: start: 20090622
  6. XANAX [Concomitant]
  7. ASVEX (TIPEPIDINE HIBENZATE) [Concomitant]

REACTIONS (2)
  - DIARRHOEA [None]
  - RENAL FAILURE [None]
